FAERS Safety Report 10179667 (Version 2)
Quarter: 2014Q2

REPORT INFORMATION
  Report Type: Spontaneous
  Country: CN (occurrence: CN)
  Receive Date: 20140519
  Receipt Date: 20140624
  Transmission Date: 20141212
  Serious: Yes (Other)
  Sender: FDA-Public Use
  Company Number: CN-SA-2014SA062480

PATIENT
  Age: 58 Year
  Sex: Male

DRUGS (4)
  1. INDAPAMIDE [Suspect]
     Indication: HYPERTENSION
     Route: 048
  2. INDAPAMIDE [Suspect]
     Indication: HYPERTENSION
     Route: 065
     Dates: start: 2013, end: 2013
  3. ANTIHYPERTENSIVES [Concomitant]
     Indication: HYPERTENSION
  4. ROSUVASTATIN [Concomitant]
     Indication: BLOOD CHOLESTEROL INCREASED
     Route: 048

REACTIONS (7)
  - Pemphigus [Recovering/Resolving]
  - Rash pruritic [Recovering/Resolving]
  - Skin erosion [Recovering/Resolving]
  - Erythema [Recovering/Resolving]
  - Skin exfoliation [Recovering/Resolving]
  - Blister [Recovering/Resolving]
  - Antinuclear antibody positive [Recovering/Resolving]
